FAERS Safety Report 8990948 (Version 1)
Quarter: 2012Q4

REPORT INFORMATION
  Report Type: Spontaneous
  Country: IN (occurrence: None)
  Receive Date: 20121220
  Receipt Date: 20121220
  Transmission Date: 20130627
  Serious: Yes (Hospitalization)
  Sender: FDA-Public Use
  Company Number: B0853573A

PATIENT
  Age: 24 Year
  Sex: Male

DRUGS (9)
  1. ONDANSETRON HYDROCHLORIDE [Suspect]
     Indication: GASTROENTERITIS
     Route: 048
  2. OFLOXACIN [Concomitant]
  3. ORNIDAZOLE [Concomitant]
  4. MULTIVITAMIN [Concomitant]
  5. RIFAMPICIN [Concomitant]
  6. ISONIAZID [Concomitant]
  7. ETHAMBUTOL [Concomitant]
  8. PYRAZINAMIDE [Concomitant]
  9. CO-TRIMOXAZOLE [Concomitant]

REACTIONS (2)
  - Toxic epidermal necrolysis [None]
  - White blood cell count decreased [None]
